FAERS Safety Report 16896038 (Version 4)
Quarter: 2019Q4

REPORT INFORMATION
  Report Type: Spontaneous
  Country: PT (occurrence: PT)
  Receive Date: 20191008
  Receipt Date: 20191227
  Transmission Date: 20200122
  Serious: Yes (Hospitalization, Other)
  Sender: FDA-Public Use
  Company Number: PT-ELI_LILLY_AND_COMPANY-PT201909013898

PATIENT
  Age: 70 Year
  Sex: Male

DRUGS (7)
  1. CARBOPLATIN. [Suspect]
     Active Substance: CARBOPLATIN
     Indication: LUNG NEOPLASM MALIGNANT
     Dosage: UNK UNK, UNKNOWN
     Route: 065
     Dates: start: 20190409, end: 20190611
  2. ISONIAZID. [Concomitant]
     Active Substance: ISONIAZID
     Indication: TUBERCULOSIS
     Dosage: UNK, UNKNOWN
     Route: 065
     Dates: start: 20181231
  3. PEMETREXED. [Suspect]
     Active Substance: PEMETREXED
     Dosage: UNK UNK, UNKNOWN
     Route: 065
     Dates: start: 20190702, end: 20190723
  4. ISONIAZID. [Concomitant]
     Active Substance: ISONIAZID
     Dosage: UNK, UNKNOWN
     Route: 065
     Dates: start: 20190314
  5. RIFAMPICIN [Concomitant]
     Active Substance: RIFAMPIN
     Indication: TUBERCULOSIS
     Dosage: UNK, UNKNOWN
     Route: 065
     Dates: start: 20190314
  6. PEMETREXED. [Suspect]
     Active Substance: PEMETREXED
     Indication: LUNG NEOPLASM MALIGNANT
     Dosage: UNK UNK, UNKNOWN
     Route: 065
     Dates: start: 20190409, end: 20190611
  7. TECENTRIQ [Suspect]
     Active Substance: ATEZOLIZUMAB
     Indication: LUNG NEOPLASM MALIGNANT
     Dosage: UNK, UNKNOWN
     Route: 065
     Dates: start: 20190830, end: 20190830

REACTIONS (2)
  - Hepatitis [Not Recovered/Not Resolved]
  - Off label use [Unknown]

NARRATIVE: CASE EVENT DATE: 20190919
